FAERS Safety Report 16161421 (Version 2)
Quarter: 2019Q3

REPORT INFORMATION
  Report Type: Report from Study
  Country: GB (occurrence: GB)
  Receive Date: 20190405
  Receipt Date: 20190726
  Transmission Date: 20191004
  Serious: Yes (Other)
  Sender: FDA-Public Use
  Company Number: GB-TEVA-2019-GB-1033226

PATIENT
  Age: 60 Year
  Sex: Female

DRUGS (2)
  1. COCODAMOL [Concomitant]
     Active Substance: ACETAMINOPHEN\CODEINE PHOSPHATE
  2. COPAXONE [Suspect]
     Active Substance: GLATIRAMER ACETATE
     Indication: PRODUCT USED FOR UNKNOWN INDICATION
     Dosage: 20 MILLIGRAM/MILLILITERS DAILY; VIA PRE-FILLED SYRINGE
     Route: 058
     Dates: start: 20170630, end: 20190415

REACTIONS (19)
  - Rash [Unknown]
  - Hypersensitivity [Unknown]
  - Urinary incontinence [Unknown]
  - Rash generalised [Unknown]
  - Incontinence [Unknown]
  - Feeling hot [Unknown]
  - Anal incontinence [Unknown]
  - Palpitations [Unknown]
  - Malaise [Unknown]
  - Mobility decreased [Unknown]
  - Poor peripheral circulation [Unknown]
  - Functional gastrointestinal disorder [Unknown]
  - Peripheral vascular disorder [Unknown]
  - Burning sensation [Unknown]
  - Feeling cold [Unknown]
  - Tremor [Unknown]
  - Cystitis [Unknown]
  - Adverse drug reaction [Unknown]
  - General physical health deterioration [Unknown]

NARRATIVE: CASE EVENT DATE: 20190326
